FAERS Safety Report 19034882 (Version 3)
Quarter: 2021Q2

REPORT INFORMATION
  Report Type: Report from Study
  Country: None (occurrence: TR)
  Receive Date: 20210320
  Receipt Date: 20210427
  Transmission Date: 20210717
  Serious: Yes (Death, Hospitalization)
  Sender: FDA-Public Use
  Company Number: TR-ABBVIE-21K-161-3823840-00

PATIENT
  Age: 76 Year
  Sex: Male
  Weight: 66 kg

DRUGS (5)
  1. DUODOPA [Suspect]
     Active Substance: CARBIDOPA\LEVODOPA
  2. KINZY [Concomitant]
     Indication: PROSTATIC DISORDER
     Route: 048
     Dates: start: 2011
  3. REMERON [Concomitant]
     Active Substance: MIRTAZAPINE
     Indication: PARKINSON^S DISEASE
     Route: 048
  4. DUODOPA [Suspect]
     Active Substance: CARBIDOPA\LEVODOPA
     Indication: PARKINSON^S DISEASE
     Dosage: MORNING DOSE (ML): 8.50 CONTINIOUS DOSE (ML): 1.90 EXTRA DOSE (ML): 1.50
     Route: 050
     Dates: start: 20210315
  5. MADOPAR HBS [Concomitant]
     Active Substance: BENSERAZIDE HYDROCHLORIDE\LEVODOPA
     Indication: PARKINSON^S DISEASE
     Dosage: 1X2
     Route: 048

REACTIONS (2)
  - Sepsis [Fatal]
  - Dyspnoea [Unknown]

NARRATIVE: CASE EVENT DATE: 202103
